FAERS Safety Report 26083636 (Version 1)
Quarter: 2025Q4

REPORT INFORMATION
  Report Type: Spontaneous
  Country: US (occurrence: None)
  Receive Date: 20251124
  Receipt Date: 20251124
  Transmission Date: 20260117
  Serious: Yes (Death)
  Sender: FDA-CTU
  Company Number: None

PATIENT
  Sex: Male

DRUGS (23)
  1. MYCOPHENOLIC ACID [Suspect]
     Active Substance: MYCOPHENOLIC ACID
     Dosage: 360 MG TWICE A DAY ORAL
     Route: 048
  2. TACROLIMUS [Suspect]
     Active Substance: TACROLIMUS
     Dosage: 0.5 MG  1 QPM + 1 QOD ORAL ?
     Route: 048
  3. FUROSEMIDE [Concomitant]
     Active Substance: FUROSEMIDE
  4. OMEPRAZOLE [Concomitant]
     Active Substance: OMEPRAZOLE
  5. GABAPENTIN [Concomitant]
     Active Substance: GABAPENTIN
  6. BUPROPION [Concomitant]
     Active Substance: BUPROPION
  7. Metoprolol ER 50 mg [Concomitant]
  8. Mag-Oxide 400 mg [Concomitant]
  9. Vitamin B6 25 mg [Concomitant]
  10. ISONIAZID [Concomitant]
     Active Substance: ISONIAZID
  11. Posaconzaole 100 mg DR [Concomitant]
  12. CALCIUM CITRATE\CHOLECALCIFEROL [Concomitant]
     Active Substance: CALCIUM CITRATE\CHOLECALCIFEROL
  13. Sulfameth/Trimeth 400-80 mg [Concomitant]
  14. Valganciclovir 450 mg [Concomitant]
  15. AMLODIPINE [Concomitant]
     Active Substance: AMLODIPINE BESYLATE
  16. AZITHROMYCIN ANHYDROUS [Concomitant]
     Active Substance: AZITHROMYCIN ANHYDROUS
  17. ASPIRIN [Concomitant]
     Active Substance: ASPIRIN
  18. CYCLOBENZAPRINE HYDROCHLORIDE [Concomitant]
     Active Substance: CYCLOBENZAPRINE HYDROCHLORIDE
  19. PREDNISONE [Concomitant]
     Active Substance: PREDNISONE
  20. ROSUVASTATIN [Concomitant]
     Active Substance: ROSUVASTATIN
  21. Enoxaparin 40 mg/0.4 mL [Concomitant]
  22. JARDIANCE [Concomitant]
     Active Substance: EMPAGLIFLOZIN
  23. EZETIMIBE [Concomitant]
     Active Substance: EZETIMIBE

REACTIONS (1)
  - Death [None]
